FAERS Safety Report 15208354 (Version 1)
Quarter: 2018Q3

REPORT INFORMATION
  Report Type: Spontaneous
  Country: US (occurrence: US)
  Receive Date: 20180628
  Receipt Date: 20180628
  Transmission Date: 20181010
  Serious: Yes (Hospitalization)
  Sender: FDA-Public Use
  Company Number: None

PATIENT
  Age: 71 Year
  Sex: Male
  Weight: 127.01 kg

DRUGS (15)
  1. BENZONATATE. [Concomitant]
     Active Substance: BENZONATATE
  2. FLUTICASONE. [Concomitant]
     Active Substance: FLUTICASONE
  3. LISINOPRIL. [Concomitant]
     Active Substance: LISINOPRIL
  4. GUAIFENESIN. [Concomitant]
     Active Substance: GUAIFENESIN
  5. HYDROCHLOROTHIAZIDE. [Concomitant]
     Active Substance: HYDROCHLOROTHIAZIDE
  6. CARBOXYMETHYLCELLULOSE 0.5% PF OPTHALMIC SOLUTION [Concomitant]
  7. ATORVASTATIN [Concomitant]
     Active Substance: ATORVASTATIN
  8. CHOLECALCIFEROL [Concomitant]
     Active Substance: CHOLECALCIFEROL
  9. LORATADINE. [Concomitant]
     Active Substance: LORATADINE
  10. OMEPRAZOLE. [Concomitant]
     Active Substance: OMEPRAZOLE
  11. DICYCLOMINE [Concomitant]
     Active Substance: DICYCLOMINE HYDROCHLORIDE
  12. SILDENAFIL. [Concomitant]
     Active Substance: SILDENAFIL
  13. LOPERAMIDE [Concomitant]
     Active Substance: LOPERAMIDE
  14. LISINOPRIL. [Suspect]
     Active Substance: LISINOPRIL
     Indication: HYPERTENSION
     Route: 048
     Dates: start: 20041001, end: 20180608
  15. ASPIRIN 81MG [Concomitant]
     Active Substance: ASPIRIN

REACTIONS (2)
  - Oropharyngeal oedema [None]
  - Uvulitis [None]

NARRATIVE: CASE EVENT DATE: 20180608
